FAERS Safety Report 21415108 (Version 1)
Quarter: 2022Q4

REPORT INFORMATION
  Report Type: Spontaneous
  Country: ES (occurrence: ES)
  Receive Date: 20221006
  Receipt Date: 20221006
  Transmission Date: 20230113
  Serious: Yes (Hospitalization, Other)
  Sender: FDA-Public Use
  Company Number: ES-SA-SAC20221003000272

PATIENT
  Sex: Female
  Weight: 82 kg

DRUGS (2)
  1. LANTUS SOLOSTAR [Suspect]
     Active Substance: INSULIN GLARGINE
     Indication: Type 2 diabetes mellitus
     Dosage: UNK
     Route: 058
  2. TRULICITY [Suspect]
     Active Substance: DULAGLUTIDE
     Indication: Type 2 diabetes mellitus
     Dosage: 0.75 MG, QW
     Route: 058

REACTIONS (11)
  - Cholelithiasis [Unknown]
  - Cataract [Recovered/Resolved]
  - Nausea [Recovering/Resolving]
  - Discomfort [Recovering/Resolving]
  - Malaise [Unknown]
  - Hypotension [Recovering/Resolving]
  - Intervertebral disc disorder [Unknown]
  - Blood bilirubin increased [Recovered/Resolved]
  - Blood cholesterol abnormal [Recovering/Resolving]
  - Illness [Unknown]
  - Visual impairment [Unknown]
